FAERS Safety Report 7565226-7 (Version None)
Quarter: 2011Q2

REPORT INFORMATION
  Report Type: 
  Country: None (occurrence: None)
  Receive Date: 20110622
  Receipt Date: 20110613
  Transmission Date: 20111010
  Serious: Yes (Hospitalization, Disabling)
  Sender: FDA-Public Use
  Company Number: US-MERCK-1006USA03992

PATIENT
  Age: 58 Year
  Sex: Female
  Weight: 73 kg

DRUGS (4)
  1. FOSAMAX [Suspect]
     Indication: OSTEOPENIA
     Route: 048
     Dates: start: 20040715, end: 20080402
  2. ACTONEL [Suspect]
     Indication: OSTEOPENIA
     Route: 048
     Dates: start: 20030715, end: 20050701
  3. FOSAMAX [Suspect]
     Route: 048
     Dates: start: 20060919
  4. PREMARIN [Concomitant]
     Indication: HORMONE THERAPY
     Route: 048
     Dates: start: 19970401

REACTIONS (34)
  - FAMILY STRESS [None]
  - LICHEN PLANUS [None]
  - LEUKOPLAKIA ORAL [None]
  - TOOTH INFECTION [None]
  - TOOTH FRACTURE [None]
  - TENDONITIS [None]
  - HERPES ZOSTER [None]
  - COUGH [None]
  - NEOPLASM SKIN [None]
  - GINGIVAL ABSCESS [None]
  - PSORIASIS [None]
  - ACTINOMYCOSIS [None]
  - TRIGGER FINGER [None]
  - OSTEONECROSIS OF JAW [None]
  - LYMPHADENOPATHY [None]
  - CHRONIC OBSTRUCTIVE PULMONARY DISEASE [None]
  - ADVERSE DRUG REACTION [None]
  - CELLULITIS [None]
  - ARTHRITIS [None]
  - DEPRESSION [None]
  - ORAL DISORDER [None]
  - JAW DISORDER [None]
  - ONYCHOMYCOSIS [None]
  - DENTAL CARIES [None]
  - PERIODONTAL DISEASE [None]
  - ADVERSE EVENT [None]
  - COLITIS [None]
  - ECZEMA [None]
  - GASTROINTESTINAL TRACT ADENOMA [None]
  - URTICARIA [None]
  - TOOTH DISORDER [None]
  - DERMATITIS CONTACT [None]
  - COLONIC POLYP [None]
  - AUTOIMMUNE DISORDER [None]
